FAERS Safety Report 12994946 (Version 3)
Quarter: 2017Q1

REPORT INFORMATION
  Report Type: Report from Study
  Country: None (occurrence: DK)
  Receive Date: 20161202
  Receipt Date: 20170112
  Transmission Date: 20170428
  Serious: Yes (Hospitalization)
  Sender: FDA-Public Use
  Company Number: DK-ABBVIE-16P-044-1792617-00

PATIENT
  Age: 68 Year
  Sex: Female
  Weight: 67.8 kg

DRUGS (13)
  1. TERBUTALIN [Concomitant]
     Active Substance: TERBUTALINE
     Indication: ASTHMA
     Route: 055
     Dates: start: 20160606
  2. NORMAL SALINE SOLUTION (0.9% SODIUM CHLORIDE) [Concomitant]
     Indication: PROPHYLAXIS
  3. NORMAL SALINE SOLUTION (0.9% SODIUM CHLORIDE) [Concomitant]
     Indication: TUMOUR LYSIS SYNDROME
     Route: 042
     Dates: start: 20161123, end: 20161124
  4. ACICLOVIR [Concomitant]
     Active Substance: ACYCLOVIR
     Indication: INFECTION PROPHYLAXIS
     Route: 048
     Dates: start: 20120107
  5. BUDESONID [Concomitant]
     Active Substance: BUDESONIDE
     Indication: ASTHMA
     Route: 055
     Dates: start: 20160202
  6. ISOTON GLUCOSE [Concomitant]
     Indication: PROPHYLAXIS
  7. ISOTON GLUCOSE [Concomitant]
     Indication: FLUID REPLACEMENT
  8. VENETOCLAX [Suspect]
     Active Substance: VENETOCLAX
     Indication: CHRONIC LYMPHOCYTIC LEUKAEMIA
     Route: 048
     Dates: start: 20161124, end: 20161124
  9. CALCIUM WITH D-VITAMIN [Concomitant]
     Indication: OSTEOPOROSIS PROPHYLAXIS
     Dosage: 400 + 19 MG + MICRO
     Route: 048
     Dates: start: 20150731
  10. NORMAL SALINE SOLUTION (0.9% SODIUM CHLORIDE) [Concomitant]
     Indication: FLUID REPLACEMENT
  11. ISOTON GLUCOSE [Concomitant]
     Indication: TUMOUR LYSIS SYNDROME
     Route: 042
     Dates: start: 20161123, end: 20161123
  12. ALLOPURINOL. [Concomitant]
     Active Substance: ALLOPURINOL
     Indication: TUMOUR LYSIS SYNDROME
     Route: 048
     Dates: start: 20161114
  13. ALLOPURINOL. [Concomitant]
     Active Substance: ALLOPURINOL
     Indication: PROPHYLAXIS

REACTIONS (4)
  - Blood lactate dehydrogenase increased [Recovered/Resolved]
  - Febrile neutropenia [Recovered/Resolved]
  - Aspartate aminotransferase increased [Recovered/Resolved]
  - Arthritis [Recovered/Resolved]

NARRATIVE: CASE EVENT DATE: 20161124
